FAERS Safety Report 8292174 (Version 4)
Quarter: 2015Q4

REPORT INFORMATION
  Report Type: Report from Study
  Country: KR (occurrence: KR)
  Receive Date: 20111215
  Receipt Date: 20151112
  Transmission Date: 20160305
  Serious: Yes (Hospitalization)
  Sender: FDA-Public Use
  Company Number: KR-PFIZER INC-2011300165

PATIENT
  Age: 48 Year
  Sex: Male
  Weight: 69 kg

DRUGS (7)
  1. HARNAL [Concomitant]
     Active Substance: TAMSULOSIN HYDROCHLORIDE
     Indication: BENIGN PROSTATIC HYPERPLASIA
     Dosage: 0.2 MG, 1X/DAY
     Dates: start: 20110225
  2. SUNITINIB MALATE. [Suspect]
     Active Substance: SUNITINIB MALATE
     Indication: RENAL CELL CARCINOMA
     Dosage: 50 MG, 1X/DAY
     Route: 048
     Dates: start: 20110225, end: 20110618
  3. MAGMIL [Concomitant]
     Active Substance: MAGNESIUM HYDROXIDE
     Indication: LAXATIVE SUPPORTIVE CARE
     Dosage: 1500 MG, 1X/DAY
     Dates: start: 20110225
  4. OXYCONTIN [Concomitant]
     Active Substance: OXYCODONE HYDROCHLORIDE
     Indication: BONE PAIN
     Dosage: 40 MG, 1X/DAY
     Dates: start: 20110303
  5. MYOTONINE [Concomitant]
     Indication: MUSCLE RELAXANT THERAPY
     Dosage: 25 MG, 1X/DAY
     Dates: start: 20110225
  6. TYLENOL [Concomitant]
     Active Substance: ACETAMINOPHEN
     Indication: HEADACHE
     Dosage: 1950 MG, 1X/DAY
     Dates: start: 20110225
  7. DUPHALAC [Concomitant]
     Active Substance: LACTULOSE
     Indication: LAXATIVE SUPPORTIVE CARE
     Dosage: 20 ML, 1X/DAY
     Dates: start: 20110225

REACTIONS (1)
  - Pleural effusion [Recovered/Resolved]

NARRATIVE: CASE EVENT DATE: 20110618
